FAERS Safety Report 12625611 (Version 1)
Quarter: 2016Q3

REPORT INFORMATION
  Report Type: Spontaneous
  Country: CN (occurrence: CN)
  Receive Date: 20160805
  Receipt Date: 20160805
  Transmission Date: 20161109
  Serious: Yes (Other)
  Sender: FDA-Public Use
  Company Number: CN-BAYER-2016-150273

PATIENT
  Age: 82 Year
  Sex: Female
  Weight: 70 kg

DRUGS (2)
  1. AVELOX [Suspect]
     Active Substance: MOXIFLOXACIN HYDROCHLORIDE
     Indication: INFECTION
     Dosage: 0.4 G, QD
     Route: 041
     Dates: start: 20160531, end: 20160601
  2. AVELOX [Suspect]
     Active Substance: MOXIFLOXACIN HYDROCHLORIDE
     Indication: INFECTION
     Dosage: 0.4 G, QD
     Route: 048
     Dates: start: 20160529, end: 20160531

REACTIONS (1)
  - Mental disorder [Recovering/Resolving]

NARRATIVE: CASE EVENT DATE: 20160602
